FAERS Safety Report 21594409 (Version 1)
Quarter: 2022Q4

REPORT INFORMATION
  Report Type: Other
  Country: US (occurrence: None)
  Receive Date: 20221115
  Receipt Date: 20221115
  Transmission Date: 20230113
  Serious: No
  Sender: FDA-Public Use
  Company Number: US-ROCHE-3115290

PATIENT
  Age: 34 Year
  Sex: Female

DRUGS (2)
  1. OSELTAMIVIR [Suspect]
     Active Substance: OSELTAMIVIR
     Indication: Influenza
     Route: 065
  2. SOTALOL [Concomitant]
     Active Substance: SOTALOL

REACTIONS (1)
  - Maternal exposure during pregnancy [Unknown]
